FAERS Safety Report 17310721 (Version 1)
Quarter: 2020Q1

REPORT INFORMATION
  Report Type: Spontaneous
  Country: US (occurrence: US)
  Receive Date: 20200123
  Receipt Date: 20200123
  Transmission Date: 20200409
  Serious: No
  Sender: FDA-Public Use
  Company Number: US-ROCHE-2339171

PATIENT
  Sex: Male

DRUGS (1)
  1. RITUXAN HYCELA [Suspect]
     Active Substance: HYALURONIDASE (HUMAN RECOMBINANT)\RITUXIMAB
     Indication: B-CELL LYMPHOMA
     Dosage: WEEKLY X 4 DOSES
     Route: 058

REACTIONS (4)
  - Rash [Unknown]
  - Skin exfoliation [Unknown]
  - Skin texture abnormal [Unknown]
  - Myalgia [Unknown]
